FAERS Safety Report 11542129 (Version 1)
Quarter: 2015Q3

REPORT INFORMATION
  Report Type: Spontaneous
  Country: CA (occurrence: CA)
  Receive Date: 20150923
  Receipt Date: 20150923
  Transmission Date: 20151125
  Serious: Yes (Other)
  Sender: FDA-Public Use
  Company Number: CA-TEVA-595090ACC

PATIENT
  Age: 56 Year
  Sex: Female

DRUGS (3)
  1. NOVAMOXIN [Suspect]
     Active Substance: AMOXICILLIN
     Indication: TOOTH INFECTION
     Route: 048
  2. DOXEPIN [Concomitant]
     Active Substance: DOXEPIN
  3. RISPERIDONE. [Concomitant]
     Active Substance: RISPERIDONE

REACTIONS (3)
  - Diarrhoea [Unknown]
  - Dysphagia [Unknown]
  - Lip swelling [Unknown]
